FAERS Safety Report 17522330 (Version 1)
Quarter: 2020Q1

REPORT INFORMATION
  Report Type: Spontaneous
  Country: US (occurrence: US)
  Receive Date: 20200310
  Receipt Date: 20200310
  Transmission Date: 20200409
  Serious: Yes (Other)
  Sender: FDA-Public Use
  Company Number: US-PFIZER INC-2020101865

PATIENT

DRUGS (1)
  1. LYRICA [Suspect]
     Active Substance: PREGABALIN
     Dosage: 75 MG, 2X/DAY

REACTIONS (7)
  - Renal failure [Unknown]
  - Stress [Unknown]
  - Decreased appetite [Unknown]
  - Nausea [Unknown]
  - Urine abnormality [Unknown]
  - Influenza [Recovered/Resolved]
  - Renal pain [Unknown]
